FAERS Safety Report 4514975-3 (Version None)
Quarter: 2004Q4

REPORT INFORMATION
  Report Type: 
  Country: None (occurrence: None)
  Receive Date: 20041129
  Receipt Date: 20041129
  Transmission Date: 20050328
  Serious: Yes (Other)
  Sender: FDA-Public Use
  Company Number: None

PATIENT
  Sex: Female
  Weight: 51.7101 kg

DRUGS (2)
  1. HYDROXYCHLOROQUIN 200 MG ? WATSON [Suspect]
     Indication: SYSTEMIC LUPUS ERYTHEMATOSUS
     Dosage: 200 MG QD
     Dates: start: 20041027, end: 20041106
  2. PREDNISONE [Concomitant]

REACTIONS (4)
  - DRY THROAT [None]
  - DYSPHAGIA [None]
  - PHARMACEUTICAL PRODUCT COMPLAINT [None]
  - THROAT TIGHTNESS [None]
